FAERS Safety Report 9970466 (Version 1)
Quarter: 2014Q1

REPORT INFORMATION
  Report Type: Report from Study
  Country: US (occurrence: US)
  Receive Date: 20140306
  Receipt Date: 20140306
  Transmission Date: 20141002
  Serious: No
  Sender: FDA-Public Use
  Company Number: US-ABBVIE-13P-163-1148951-00

PATIENT
  Age: 54 Year
  Sex: Female

DRUGS (19)
  1. HUMIRA [Suspect]
     Indication: CROHN^S DISEASE
     Dosage: DAY ONE
     Dates: start: 20130910, end: 20130910
  2. HUMIRA [Suspect]
     Dosage: DAY TWO
  3. TRAZADONE [Concomitant]
     Indication: INSOMNIA
     Dosage: AT BEDTIME
  4. FLONASE [Concomitant]
     Indication: PRODUCT USED FOR UNKNOWN INDICATION
     Dosage: TWO SPRAYS EACH SIDE AS NEEDED
  5. ESCITALOPRAM [Concomitant]
     Indication: PRODUCT USED FOR UNKNOWN INDICATION
  6. DOCUSATE [Concomitant]
     Indication: CONSTIPATION
     Dosage: ONE TO TWO CAPS AS NEEDED
  7. TYLENOL ES [Concomitant]
     Indication: PAIN
     Dosage: ONE TO TWO AS NEEDED
  8. ADVAIR [Concomitant]
     Indication: PRODUCT USED FOR UNKNOWN INDICATION
     Dosage: 250/50 MILLIGRAMS, DISKUS
  9. ALBUTEROL SULFATE [Concomitant]
     Indication: PRODUCT USED FOR UNKNOWN INDICATION
     Dosage: 2.5MG/3ML, ONE TO TWO AS NEEDED
  10. ANASPAZ [Concomitant]
     Indication: ABDOMINAL PAIN UPPER
     Dosage: ONE SL AS NEEDED
  11. FUROSEMIDE [Concomitant]
     Indication: PRODUCT USED FOR UNKNOWN INDICATION
  12. LISINOPRIL [Concomitant]
     Indication: PRODUCT USED FOR UNKNOWN INDICATION
  13. POTASSIUM CHLORIDE [Concomitant]
     Indication: PRODUCT USED FOR UNKNOWN INDICATION
  14. PROVENTIL [Concomitant]
     Indication: PRODUCT USED FOR UNKNOWN INDICATION
     Dosage: TWO PUFFS EVERY FOUR TO SIX HOURS
  15. REMERON [Concomitant]
     Indication: INSOMNIA
     Dosage: AT BEDTIME
  16. SINGULAIR [Concomitant]
     Indication: PRODUCT USED FOR UNKNOWN INDICATION
  17. SPIRIVA [Concomitant]
     Indication: PRODUCT USED FOR UNKNOWN INDICATION
     Route: 055
  18. VOLTAREN [Concomitant]
     Indication: PAIN
     Route: 061
  19. PREDNISONE [Concomitant]
     Indication: PRODUCT USED FOR UNKNOWN INDICATION

REACTIONS (3)
  - Local swelling [Recovered/Resolved]
  - Pharyngeal oedema [Recovered/Resolved]
  - Weight increased [Recovered/Resolved]
